FAERS Safety Report 11831866 (Version 5)
Quarter: 2016Q1

REPORT INFORMATION
  Report Type: Report from Study
  Country: IN (occurrence: IN)
  Receive Date: 20151214
  Receipt Date: 20160210
  Transmission Date: 20160525
  Serious: Yes (Hospitalization)
  Sender: FDA-Public Use
  Company Number: IN-NOVOPROD-472404

PATIENT
  Age: 61 Year
  Sex: Female
  Weight: 48 kg

DRUGS (14)
  1. IDEG 100U VIAL [Suspect]
     Active Substance: INSULIN DEGLUDEC
     Dosage: 18 U, QD
     Route: 058
     Dates: start: 20151205
  2. NOVORAPID [Suspect]
     Active Substance: INSULIN ASPART
     Dosage: 8 U, QD
     Route: 058
     Dates: start: 20151203
  3. IDEG 100U VIAL [Suspect]
     Active Substance: INSULIN DEGLUDEC
     Indication: TYPE 2 DIABETES MELLITUS
     Dosage: 20.0,,QD
     Route: 058
     Dates: start: 20141120
  4. IDEG 100U VIAL [Suspect]
     Active Substance: INSULIN DEGLUDEC
     Dosage: 12 U, QD
     Route: 058
     Dates: start: 20151203
  5. IDEG 100U VIAL [Suspect]
     Active Substance: INSULIN DEGLUDEC
     Dosage: 16 U, QD
     Route: 058
     Dates: start: 20151204
  6. IDEG 100U VIAL [Suspect]
     Active Substance: INSULIN DEGLUDEC
     Dosage: 20 U, QD
     Route: 058
     Dates: start: 20151207
  7. IDEG 100U VIAL [Suspect]
     Active Substance: INSULIN DEGLUDEC
     Dosage: 20 U, QD
     Route: 058
     Dates: start: 20151208
  8. NOVORAPID [Suspect]
     Active Substance: INSULIN ASPART
     Dosage: 16 U, QD
     Route: 058
     Dates: start: 20151205
  9. IDEG 100U VIAL [Suspect]
     Active Substance: INSULIN DEGLUDEC
     Dosage: 18 U, QD
     Route: 058
     Dates: start: 20151206
  10. NOVORAPID [Suspect]
     Active Substance: INSULIN ASPART
     Dosage: 4 U, TID
     Route: 058
     Dates: start: 20151204
  11. NOVORAPID [Suspect]
     Active Substance: INSULIN ASPART
     Dosage: 16 U, QD
     Route: 058
     Dates: start: 20151206
  12. NOVORAPID [Suspect]
     Active Substance: INSULIN ASPART
     Indication: TYPE 2 DIABETES MELLITUS
     Dosage: 20 U, QD
     Route: 058
     Dates: start: 20141120
  13. NOVORAPID [Suspect]
     Active Substance: INSULIN ASPART
     Dosage: 20 U, QD
     Route: 058
     Dates: start: 20151207
  14. NOVORAPID [Suspect]
     Active Substance: INSULIN ASPART
     Dosage: 20 U, QD
     Route: 058
     Dates: start: 20151208

REACTIONS (2)
  - Labyrinthitis [Recovered/Resolved with Sequelae]
  - Deafness neurosensory [Not Recovered/Not Resolved]

NARRATIVE: CASE EVENT DATE: 20151201
